FAERS Safety Report 5838339-5 (Version None)
Quarter: 2008Q3

REPORT INFORMATION
  Report Type: 
  Country: None (occurrence: None)
  Receive Date: 20080806
  Receipt Date: 20080717
  Transmission Date: 20090109
  Serious: Yes (Hospitalization, Other)
  Sender: FDA-Public Use
  Company Number: 14691

PATIENT
  Sex: Female

DRUGS (1)
  1. MORPHINE SULFATE ER TABLETS (ETHEX CORPORATION) [Suspect]

REACTIONS (2)
  - HEPATIC FAILURE [None]
  - PHARMACEUTICAL PRODUCT COMPLAINT [None]
